FAERS Safety Report 17191530 (Version 1)
Quarter: 2019Q4

REPORT INFORMATION
  Report Type: Spontaneous
  Country: US (occurrence: US)
  Receive Date: 20191221
  Receipt Date: 20191221
  Transmission Date: 20200122
  Serious: No
  Sender: FDA-Public Use
  Company Number: None

PATIENT
  Age: 64 Year
  Sex: Male
  Weight: 65.25 kg

DRUGS (2)
  1. LEVAQUIN [Suspect]
     Active Substance: LEVOFLOXACIN
     Indication: BRONCHITIS
     Dates: start: 20191210, end: 20191217
  2. JARDIANCE [Concomitant]
     Active Substance: EMPAGLIFLOZIN

REACTIONS (4)
  - Myalgia [None]
  - Asthenia [None]
  - Arthralgia [None]
  - Dizziness [None]

NARRATIVE: CASE EVENT DATE: 20191215
